FAERS Safety Report 11632221 (Version 1)
Quarter: 2015Q4

REPORT INFORMATION
  Report Type: Spontaneous
  Country: US (occurrence: US)
  Receive Date: 20151015
  Receipt Date: 20151015
  Transmission Date: 20160304
  Serious: No
  Sender: FDA-Public Use
  Company Number: US-MYLANLABS-2015M1023290

PATIENT
  Sex: Female

DRUGS (1)
  1. ESTRADIOL TRANSDERMAL SYSTEM [Suspect]
     Active Substance: ESTRADIOL
     Indication: HORMONE REPLACEMENT THERAPY
     Dosage: 0.05 MG, QD, CHANGE TW
     Route: 062
     Dates: start: 201506

REACTIONS (6)
  - Breast pain [Not Recovered/Not Resolved]
  - Rash [Recovered/Resolved]
  - Fungal infection [Recovered/Resolved]
  - Insomnia [Recovering/Resolving]
  - Hot flush [Not Recovered/Not Resolved]
  - Wrong technique in product usage process [Not Recovered/Not Resolved]

NARRATIVE: CASE EVENT DATE: 201506
